FAERS Safety Report 5179267-0 (Version None)
Quarter: 2006Q4

REPORT INFORMATION
  Report Type: 
  Country: None (occurrence: None)
  Receive Date: 20061219
  Receipt Date: 20061211
  Transmission Date: 20070319
  Serious: Yes (Other)
  Sender: FDA-Public Use
  Company Number: SA-MERCK-0612USA02375

PATIENT
  Age: 9 Month
  Sex: Female

DRUGS (4)
  1. TIMOPTIC [Suspect]
     Route: 047
  2.  [Concomitant]
     Route: 047
  3.  [Concomitant]
     Route: 047
  4.  [Concomitant]
     Route: 047

REACTIONS (2)
  - INTRAOCULAR PRESSURE INCREASED [None]
  - TREATMENT NONCOMPLIANCE [None]
